FAERS Safety Report 14631345 (Version 3)
Quarter: 2018Q1

REPORT INFORMATION
  Report Type: Spontaneous
  Country: ES (occurrence: ES)
  Receive Date: 20180313
  Receipt Date: 20180328
  Transmission Date: 20180509
  Serious: Yes (Death, Hospitalization)
  Sender: FDA-Public Use
  Company Number: ES-PFIZER INC-2018099126

PATIENT
  Age: 66 Year
  Sex: Female

DRUGS (7)
  1. OMEPRAZOLE. [Concomitant]
     Active Substance: OMEPRAZOLE
     Dosage: 20 MG, DAILY (EVERY 24)
  2. ORFIDAL [Concomitant]
     Active Substance: LORAZEPAM
     Dosage: 1 MG, DAILY (EVERY 24 HR)
  3. TIRODRIL [Concomitant]
     Active Substance: METHIMAZOLE
     Dosage: 5 MG, ALTERNATE DAY (1/2 CAPSULE)
  4. FASLODEX [Concomitant]
     Active Substance: FULVESTRANT
     Dosage: UNK, MONTHLY (500)
  5. IBRANCE [Suspect]
     Active Substance: PALBOCICLIB
     Indication: BREAST CANCER FEMALE
     Dosage: 125 MG, DAILY (21 DAYS ON AND 7 DAYS OFF EVERY 28 DAYS)
     Dates: start: 20171218, end: 20180114
  6. DENOSUMAB [Concomitant]
     Active Substance: DENOSUMAB
     Dosage: 120 MG, MONTHLY
     Route: 058
  7. IBRANCE [Suspect]
     Active Substance: PALBOCICLIB
     Dosage: 125 MG, DAILY (21 DAYS ON AND 7 DAYS OFF EVERY 28 DAYS)
     Dates: start: 20180115, end: 20180215

REACTIONS (4)
  - Haematotoxicity [Unknown]
  - Asthenia [Unknown]
  - Thrombotic thrombocytopenic purpura [Fatal]
  - Neoplasm progression [Fatal]
